FAERS Safety Report 8119976-4 (Version None)
Quarter: 2012Q1

REPORT INFORMATION
  Report Type: 
  Country: None (occurrence: None)
  Receive Date: 20120206
  Receipt Date: 20120206
  Transmission Date: 20120608
  Serious: No
  Sender: FDA-Public Use
  Company Number: None

PATIENT
  Sex: Male
  Weight: 74.8435 kg

DRUGS (1)
  1. CYMBALTA [Suspect]
     Indication: BACK PAIN
     Dosage: 1 CAPSULE 1 A DAY MOUTH
     Route: 048
     Dates: start: 20111214, end: 20111216

REACTIONS (6)
  - HYPERHIDROSIS [None]
  - VOMITING [None]
  - ASTHENIA [None]
  - SOMNOLENCE [None]
  - DIARRHOEA [None]
  - DIZZINESS [None]
